FAERS Safety Report 19951856 (Version 2)
Quarter: 2021Q4

REPORT INFORMATION
  Report Type: Spontaneous
  Country: US (occurrence: US)
  Receive Date: 20211013
  Receipt Date: 20211021
  Transmission Date: 20220303
  Serious: Yes (Hospitalization)
  Sender: FDA-Public Use
  Company Number: US-TEVA-2021-US-1963791

PATIENT
  Age: 31 Year
  Sex: Male

DRUGS (14)
  1. AZITHROMYCIN ANHYDROUS [Suspect]
     Active Substance: AZITHROMYCIN ANHYDROUS
     Indication: Evidence based treatment
     Route: 065
  2. NOREPINEPHRINE [Suspect]
     Active Substance: NOREPINEPHRINE
     Indication: Hypotension
     Dosage: FOR 30 DAYS
     Route: 050
  3. EPINEPHRINE [Suspect]
     Active Substance: EPINEPHRINE
     Indication: Hypotension
     Dosage: INFUSION FOR 30 DAYS
     Route: 050
  4. PHENYLEPHRINE [Suspect]
     Active Substance: PHENYLEPHRINE HYDROCHLORIDE
     Indication: Hypotension
     Dosage: FOR 30 DAYS
     Route: 050
  5. CEFTRIAXONE [Suspect]
     Active Substance: CEFTRIAXONE
     Indication: Evidence based treatment
     Route: 065
  6. CHLOROQUINE [Suspect]
     Active Substance: CHLOROQUINE
     Indication: COVID-19
     Route: 065
  7. THIAMINE [Suspect]
     Active Substance: THIAMINE
     Indication: COVID-19
     Route: 065
  8. VITAMIN C [Suspect]
     Active Substance: ASCORBIC ACID
     Indication: COVID-19
     Route: 065
  9. ANAKINRA [Suspect]
     Active Substance: ANAKINRA
     Indication: COVID-19
     Route: 065
  10. METHYLPREDNISOLONE [Suspect]
     Active Substance: METHYLPREDNISOLONE
     Indication: COVID-19
     Route: 065
  11. HEPARIN [Concomitant]
     Active Substance: HEPARIN SODIUM
     Indication: Thrombosis prophylaxis
     Route: 050
  12. ARGATROBAN [Concomitant]
     Active Substance: ARGATROBAN
     Indication: Thrombosis prophylaxis
     Route: 050
  13. AMIODARONE [Concomitant]
     Active Substance: AMIODARONE
     Indication: Atrial fibrillation
     Route: 050
  14. BETADINE [Concomitant]
     Active Substance: POVIDONE-IODINE
     Indication: Gangrene
     Dosage: PAINT EVERY OTHER DAY
     Route: 065

REACTIONS (5)
  - Gangrene [Recovering/Resolving]
  - Extremity necrosis [Recovering/Resolving]
  - Atrial fibrillation [Recovering/Resolving]
  - Drug ineffective [Unknown]
  - Off label use [Unknown]
